FAERS Safety Report 5007692-7 (Version None)
Quarter: 2006Q2

REPORT INFORMATION
  Report Type: 
  Country: None (occurrence: None)
  Receive Date: 20060522
  Receipt Date: 20060515
  Transmission Date: 20061013
  Serious: Yes (Hospitalization)
  Sender: FDA-Public Use
  Company Number: PHBS2006GT07167

PATIENT
  Age: 14 Year
  Sex: Male

DRUGS (1)
  1. TRILEPTAL [Suspect]
     Indication: CONVULSION
     Dosage: 300 MG, BID
     Route: 048

REACTIONS (5)
  - CEREBELLAR SYNDROME [None]
  - DIZZINESS [None]
  - HEADACHE [None]
  - NYSTAGMUS [None]
  - PHOTOPHOBIA [None]
